FAERS Safety Report 10348900 (Version 1)
Quarter: 2014Q3

REPORT INFORMATION
  Report Type: Spontaneous
  Country: JP (occurrence: None)
  Receive Date: 20140725
  Receipt Date: 20140725
  Transmission Date: 20150326
  Serious: Yes (Life-Threatening)
  Sender: FDA-Public Use
  Company Number: 2447501

PATIENT
  Age: 56 Year
  Sex: Female
  Weight: 53 kg

DRUGS (7)
  1. MEPIVACAINE HYDROCHLORIDE. [Concomitant]
     Active Substance: MEPIVACAINE HYDROCHLORIDE
  2. CEFAZOLIN SODIUM. [Concomitant]
     Active Substance: CEFAZOLIN SODIUM
  3. LIDOCAINE. [Concomitant]
     Active Substance: LIDOCAINE
  4. OTHER LIPID MODIFYING AGENTS [Concomitant]
     Active Substance: UNSPECIFIED INGREDIENT
  5. ROPIVACAINE HYDROCHLORIDE MONOHYDRATE [Concomitant]
  6. ANTIHYPERTENSIVES [Concomitant]
     Active Substance: UNSPECIFIED INGREDIENT
  7. DEXMEDETOMIDINE HYDROCHLORIDE [Suspect]
     Active Substance: DEXMEDETOMIDINE HYDROCHLORIDE
     Indication: SEDATION
     Dosage: 17:53-18:03 10 MINUTES
     Route: 042
     Dates: start: 20140611, end: 20140611

REACTIONS (3)
  - Glossoptosis [None]
  - Upper airway obstruction [None]
  - Oxygen saturation decreased [None]

NARRATIVE: CASE EVENT DATE: 20140611
